FAERS Safety Report 14572617 (Version 2)
Quarter: 2018Q2

REPORT INFORMATION
  Report Type: Spontaneous
  Country: BR (occurrence: BR)
  Receive Date: 20180226
  Receipt Date: 20180424
  Transmission Date: 20180711
  Serious: Yes (Other)
  Sender: FDA-Public Use
  Company Number: BR-PFIZER INC-2016100618

PATIENT
  Age: 58 Year
  Sex: Male
  Weight: 80 kg

DRUGS (3)
  1. DIOVAN [Concomitant]
     Active Substance: VALSARTAN
     Dosage: UNK
  2. SUTENT [Suspect]
     Active Substance: SUNITINIB MALATE
     Indication: METASTATIC RENAL CELL CARCINOMA
     Dosage: 50 MG, CYCLE 4X2
     Route: 048
     Dates: start: 20160211
  3. SUTENT [Suspect]
     Active Substance: SUNITINIB MALATE
     Dosage: UNK

REACTIONS (25)
  - Limb discomfort [Unknown]
  - Weight decreased [Unknown]
  - Decreased appetite [Unknown]
  - Pain in extremity [Not Recovered/Not Resolved]
  - Hypokinesia [Recovered/Resolved]
  - Spinal pain [Unknown]
  - Body temperature increased [Unknown]
  - Nausea [Unknown]
  - Dyspepsia [Unknown]
  - Gait inability [Recovered/Resolved]
  - Skin burning sensation [Unknown]
  - Dysgeusia [Unknown]
  - Wound [Unknown]
  - Skin haemorrhage [Recovered/Resolved]
  - Body temperature decreased [Unknown]
  - Diarrhoea [Recovering/Resolving]
  - Impaired healing [Unknown]
  - Abdominal pain upper [Unknown]
  - Skin exfoliation [Not Recovered/Not Resolved]
  - Exostosis [Not Recovered/Not Resolved]
  - Scleral haemorrhage [Recovered/Resolved]
  - Arthralgia [Unknown]
  - Haemorrhoids [Recovering/Resolving]
  - Epistaxis [Recovered/Resolved]
  - Gastrointestinal disorder [Recovering/Resolving]

NARRATIVE: CASE EVENT DATE: 2016
